FAERS Safety Report 4340613-9 (Version None)
Quarter: 2004Q2

REPORT INFORMATION
  Report Type: 
  Country: None (occurrence: None)
  Receive Date: 20040414
  Receipt Date: 20040331
  Transmission Date: 20050107
  Serious: Yes (Other)
  Sender: FDA-Public Use
  Company Number: 2004-UK-00323UK

PATIENT
  Age: 31 Year
  Sex: Male

DRUGS (5)
  1. MOBIC [Suspect]
     Indication: BACK DISORDER
     Dosage: 15 MG
     Route: 048
  2. PARACETAMOL (PARACETAMOL) (TA) [Concomitant]
  3. ATENOLOL (ATENOLOL) (TA) [Concomitant]
  4. ASPIRIN [Concomitant]
  5. CODEINE PHOSPHATE (TA) [Concomitant]

REACTIONS (4)
  - EYE PAIN [None]
  - GASTRIC HAEMORRHAGE [None]
  - GASTRIC ULCER [None]
  - INTRAOCULAR PRESSURE INCREASED [None]
